FAERS Safety Report 10944716 (Version 1)
Quarter: 2015Q1

REPORT INFORMATION
  Report Type: Spontaneous
  Country: IT (occurrence: IT)
  Receive Date: 20150323
  Receipt Date: 20150323
  Transmission Date: 20150721
  Serious: Yes (Life-Threatening, Other)
  Sender: FDA-Public Use
  Company Number: IT-BAYER-2015-036330

PATIENT
  Age: 32 Year
  Sex: Female

DRUGS (4)
  1. NIFEDIPINE. [Suspect]
     Active Substance: NIFEDIPINE
     Indication: GESTATIONAL HYPERTENSION
  2. LABETALOL [Concomitant]
     Active Substance: LABETALOL\LABETALOL HYDROCHLORIDE
     Indication: GESTATIONAL HYPERTENSION
     Dosage: 25 ML/H, CONT
  3. LABETALOL [Concomitant]
     Active Substance: LABETALOL\LABETALOL HYDROCHLORIDE
     Indication: GESTATIONAL HYPERTENSION
     Dosage: 15 ML/H, CONT
  4. BETAMETHASONE [Concomitant]
     Active Substance: BETAMETHASONE
     Indication: MATERNAL THERAPY TO ENHANCE FOETAL LUNG MATURITY

REACTIONS (6)
  - Pleural effusion [Recovered/Resolved]
  - Exposure during pregnancy [None]
  - Hepatic rupture [Recovered/Resolved]
  - Hepatic haematoma [Recovered/Resolved]
  - Hepatic failure [Recovered/Resolved]
  - Pre-eclampsia [Recovered/Resolved]
